FAERS Safety Report 6418803-0 (Version None)
Quarter: 2009Q4

REPORT INFORMATION
  Report Type: 
  Country: None (occurrence: None)
  Receive Date: 20091026
  Receipt Date: 20091019
  Transmission Date: 20100525
  Serious: Yes (Hospitalization)
  Sender: FDA-Public Use
  Company Number: 2009PL000275

PATIENT
  Age: 88 Year
  Sex: Male

DRUGS (12)
  1. IMURAN [Suspect]
     Indication: PEMPHIGOID
     Dosage: 100 MG; QD
  2. ULORIC [Suspect]
     Indication: GOUT
  3. PREDNISONE [Concomitant]
  4. BACTRIM DS [Concomitant]
  5. NAMENDA [Concomitant]
  6. COREG [Concomitant]
  7. ASPIRIN [Concomitant]
  8. TRENTAL [Concomitant]
  9. OMEPRAZOLE [Concomitant]
  10. DOCUSATE [Concomitant]
  11. CYMBALTA [Concomitant]
  12. IRON [Concomitant]

REACTIONS (7)
  - ANAEMIA MACROCYTIC [None]
  - ASTHENIA [None]
  - DRUG INTERACTION [None]
  - FATIGUE [None]
  - GOUT [None]
  - LEUKOPENIA [None]
  - VOMITING [None]
